FAERS Safety Report 9846059 (Version 1)
Quarter: 2014Q1

REPORT INFORMATION
  Report Type: Spontaneous
  Country: US (occurrence: None)
  Receive Date: 20140122
  Receipt Date: 20140122
  Transmission Date: 20141002
  Serious: Yes (Hospitalization)
  Sender: FDA-Public Use
  Company Number: SYM-2014-14786

PATIENT
  Age: 16 Year
  Sex: Male

DRUGS (1)
  1. BUPROPION HYDROCHLORIDE [Suspect]
     Indication: PRODUCT USED FOR UNKNOWN INDICATION
     Dosage: APPROXIMATELY 5 TABLETS, ONCE

REACTIONS (5)
  - Grand mal convulsion [None]
  - Mental status changes [None]
  - Hallucination [None]
  - Feeling abnormal [None]
  - Intentional drug misuse [None]
